FAERS Safety Report 5481292-7 (Version None)
Quarter: 2007Q4

REPORT INFORMATION
  Report Type: 
  Country: None (occurrence: None)
  Receive Date: 20071005
  Receipt Date: 20071005
  Transmission Date: 20080405
  Serious: No
  Sender: FDA-Public Use
  Company Number: None

PATIENT
  Age: 56 Year
  Sex: Female
  Weight: 68.0396 kg

DRUGS (1)
  1. FOSAMAX [Suspect]
     Indication: OSTEOPOROSIS
     Dates: start: 20071001, end: 20071001

REACTIONS (6)
  - ASTHENIA [None]
  - DYSPHAGIA [None]
  - FATIGUE [None]
  - PAIN IN EXTREMITY [None]
  - PALLOR [None]
  - THROAT TIGHTNESS [None]
